FAERS Safety Report 18029195 (Version 8)
Quarter: 2022Q1

REPORT INFORMATION
  Report Type: Report from Study
  Country: DE (occurrence: DE)
  Receive Date: 20200715
  Receipt Date: 20220111
  Transmission Date: 20220424
  Serious: Yes (Other)
  Sender: FDA-Public Use
  Company Number: DE-EMA-DD-20200114-KORTI_S1-120829

PATIENT
  Age: 47 Year
  Sex: Male

DRUGS (13)
  1. BACLOFEN [Suspect]
     Active Substance: BACLOFEN
     Indication: Product used for unknown indication
     Dosage: UNK
     Route: 065
  2. OCRELIZUMAB [Suspect]
     Active Substance: OCRELIZUMAB
     Indication: Primary progressive multiple sclerosis
     Dosage: 300 MILLIGRAM
     Route: 042
     Dates: start: 20181024
  3. OCRELIZUMAB [Suspect]
     Active Substance: OCRELIZUMAB
     Indication: Multiple sclerosis
     Dosage: 300 MILLIGRAM
     Route: 042
  4. OCRELIZUMAB [Suspect]
     Active Substance: OCRELIZUMAB
     Dosage: 600 MILLIGRAM (MAINTENANCE DOSE )
     Route: 042
     Dates: start: 20190408
  5. OCRELIZUMAB [Suspect]
     Active Substance: OCRELIZUMAB
     Dosage: 600 MILLIGRAM
     Route: 042
     Dates: start: 20181024
  6. OCRELIZUMAB [Suspect]
     Active Substance: OCRELIZUMAB
     Dosage: 600 MILLIGRAM
     Route: 042
     Dates: start: 20191030
  7. OCRELIZUMAB [Suspect]
     Active Substance: OCRELIZUMAB
     Dosage: 5TH MAINTENANCE DOSE
     Route: 042
     Dates: start: 20210714
  8. DALFAMPRIDINE [Suspect]
     Active Substance: DALFAMPRIDINE
     Indication: Product used for unknown indication
     Dosage: UNK
     Route: 065
  9. RIVOTRIL [Concomitant]
     Active Substance: CLONAZEPAM
     Indication: Product used for unknown indication
     Dosage: 2 MILLIGRAM, QD
  10. OPIPRAMOL [Concomitant]
     Active Substance: OPIPRAMOL
     Indication: Product used for unknown indication
     Dosage: 25 MILLIGRAM
  11. OPIPRAMOL [Concomitant]
     Active Substance: OPIPRAMOL
     Dosage: 100 MILLIGRAM, 1/4TH TABLET
  12. D3 +K2 [Concomitant]
     Indication: Product used for unknown indication
     Dosage: 4 GTT DROPS, QD
  13. COMIRNATY [Concomitant]
     Active Substance: TOZINAMERAN
     Indication: Immunisation
     Dosage: START DATE: 28-APR-2021

REACTIONS (12)
  - Multiple sclerosis relapse [Not Recovered/Not Resolved]
  - Tendonitis [Not Recovered/Not Resolved]
  - Antinuclear antibody increased [Recovered/Resolved]
  - Nasopharyngitis [Recovered/Resolved]
  - Arthralgia [Recovered/Resolved]
  - Posture abnormal [Recovered/Resolved]
  - Gait disturbance [Not Recovered/Not Resolved]
  - Hypotonia [Recovered/Resolved]
  - Drug ineffective [Unknown]
  - Pain in extremity [Recovered/Resolved]
  - Pruritus [Recovering/Resolving]
  - Dry skin [Recovering/Resolving]

NARRATIVE: CASE EVENT DATE: 20181109
